FAERS Safety Report 18061098 (Version 2)
Quarter: 2020Q3

REPORT INFORMATION
  Report Type: Spontaneous
  Country: AT (occurrence: AT)
  Receive Date: 20200723
  Receipt Date: 20200803
  Transmission Date: 20201103
  Serious: Yes (Disabling, Other)
  Sender: FDA-Public Use
  Company Number: NVSC2020AT185525

PATIENT
  Age: 78 Year
  Sex: Female

DRUGS (34)
  1. RISPERIDONE. [Suspect]
     Active Substance: RISPERIDONE
     Indication: NEUROPSYCHIATRIC SYMPTOMS
     Dosage: 2 MG, QD (DOSE INCREASED)
     Route: 065
     Dates: start: 201601
  2. RISPERIDONE. [Suspect]
     Active Substance: RISPERIDONE
     Dosage: 2 MG, QD
     Route: 065
     Dates: start: 2016, end: 2017
  3. QUETIAPINE. [Suspect]
     Active Substance: QUETIAPINE
     Indication: DEMENTIA ALZHEIMER^S TYPE
     Dosage: 25 MG, QD
     Route: 065
     Dates: start: 201601, end: 2018
  4. DIAZEPAM. [Suspect]
     Active Substance: DIAZEPAM
     Indication: DEMENTIA ALZHEIMER^S TYPE
     Dosage: 1 MG, QD
     Route: 065
     Dates: start: 201601, end: 2017
  5. VITAMIN D3 [Concomitant]
     Active Substance: CHOLECALCIFEROL
     Indication: OSTEOPOROSIS PROPHYLAXIS
     Dosage: 15 DROPS PER WEEK
     Route: 048
  6. RISPERIDONE. [Suspect]
     Active Substance: RISPERIDONE
     Dosage: 2 MG QD
     Route: 065
     Dates: start: 2009, end: 2011
  7. RISPERIDONE. [Suspect]
     Active Substance: RISPERIDONE
     Indication: DEPRESSION
     Dosage: 0.5 MG, QD (DOSE REDUCED)
     Route: 065
     Dates: start: 2013, end: 2014
  8. SERTRALINE [Suspect]
     Active Substance: SERTRALINE HYDROCHLORIDE
     Indication: DEPRESSION
     Dosage: 75 MG, QD
     Route: 065
     Dates: start: 2009, end: 2010
  9. LEVETIRACETAM. [Concomitant]
     Active Substance: LEVETIRACETAM
     Indication: DEMENTIA ALZHEIMER^S TYPE
     Dosage: 1000 MG, QD
     Route: 065
     Dates: start: 201706
  10. MEMANTINE. [Suspect]
     Active Substance: MEMANTINE
     Dosage: 20 MG, QD
     Route: 065
     Dates: start: 2010, end: 2016
  11. RISPERIDONE. [Suspect]
     Active Substance: RISPERIDONE
     Indication: DEMENTIA ALZHEIMER^S TYPE
     Dosage: 3 MG, QD
     Route: 065
     Dates: start: 200808, end: 2009
  12. MEMANTINE. [Suspect]
     Active Substance: MEMANTINE
     Indication: DEPRESSION
     Dosage: 20 MG, QD
     Route: 065
     Dates: start: 201002
  13. MEMANTINE. [Suspect]
     Active Substance: MEMANTINE
     Indication: DEMENTIA ALZHEIMER^S TYPE
     Dosage: 5 MG, QD (DOSE REDUCED)
     Route: 065
     Dates: start: 201706
  14. MEMANTINE. [Suspect]
     Active Substance: MEMANTINE
     Dosage: 10 MG, QD
     Route: 065
     Dates: start: 2017, end: 2018
  15. MEMANTINE. [Suspect]
     Active Substance: MEMANTINE
     Dosage: TITRATED TO 20 MG/DAY WITHIN 4 WEEKS
     Route: 065
     Dates: start: 201002
  16. SERTRALINE [Suspect]
     Active Substance: SERTRALINE HYDROCHLORIDE
     Dosage: 75 MG, QD
     Route: 065
     Dates: start: 2011, end: 2012
  17. QUETIAPINE. [Suspect]
     Active Substance: QUETIAPINE
     Indication: NEUROPSYCHIATRIC SYMPTOMS
  18. ENALAPRIL [Concomitant]
     Active Substance: ENALAPRIL
     Indication: HYPERTENSION
     Dosage: 5 MG, QD
     Route: 065
  19. SERTRALINE [Suspect]
     Active Substance: SERTRALINE HYDROCHLORIDE
     Dosage: 50 MG, QD
     Route: 065
     Dates: start: 2012
  20. 9?TETRAHYDROCANNABINOL [Suspect]
     Active Substance: DRONABINOL
     Indication: DEMENTIA ALZHEIMER^S TYPE
     Dosage: 0.833MG DRONABINOL/DROP. SHE TOOK 6 TO 8 DROPS OF DRONABINOL/DAY EQUIVALENT TO 4.9?6.7 MG DRONABI...
     Route: 065
     Dates: start: 201802
  21. LEVETIRACETAM. [Concomitant]
     Active Substance: LEVETIRACETAM
     Indication: DEPRESSION
  22. MEMANTINE. [Suspect]
     Active Substance: MEMANTINE
     Dosage: 5 MG, QD
     Route: 065
     Dates: start: 2018, end: 2019
  23. DONEPEZIL. [Suspect]
     Active Substance: DONEPEZIL
     Indication: DEMENTIA ALZHEIMER^S TYPE
     Dosage: 5 MG, QD
     Route: 065
     Dates: start: 200808
  24. DONEPEZIL. [Suspect]
     Active Substance: DONEPEZIL
     Dosage: 10 MG, QD
     Route: 065
     Dates: start: 2008
  25. RISPERIDONE. [Suspect]
     Active Substance: RISPERIDONE
     Dosage: 1 MG QD
     Route: 065
     Dates: start: 2015, end: 2016
  26. RISPERIDONE. [Suspect]
     Active Substance: RISPERIDONE
     Dosage: 1 MG QD
     Route: 065
     Dates: start: 2012, end: 2013
  27. SERTRALINE [Suspect]
     Active Substance: SERTRALINE HYDROCHLORIDE
     Dosage: 75 MG, QD
     Route: 065
  28. DONEPEZIL. [Suspect]
     Active Substance: DONEPEZIL
     Indication: DEPRESSION
     Dosage: 10 MG, QD (FROM WEEK 4)
     Route: 065
  29. SERTRALINE [Suspect]
     Active Substance: SERTRALINE HYDROCHLORIDE
     Indication: DEMENTIA ALZHEIMER^S TYPE
     Dosage: 50 MG, QD
     Route: 065
     Dates: start: 200808
  30. SERTRALINE [Suspect]
     Active Substance: SERTRALINE HYDROCHLORIDE
     Dosage: 100 MG, QD
     Route: 065
     Dates: start: 2010, end: 2011
  31. QUETIAPINE. [Suspect]
     Active Substance: QUETIAPINE
     Indication: DEPRESSION
  32. DIAZEPAM. [Suspect]
     Active Substance: DIAZEPAM
     Indication: DEPRESSION
     Dosage: 2 MG, QD
     Route: 065
     Dates: start: 2017, end: 2018
  33. METFORMIN [Concomitant]
     Active Substance: METFORMIN HYDROCHLORIDE
     Indication: TYPE 2 DIABETES MELLITUS
     Dosage: 100 MG, QD
     Route: 065
  34. VITAMIN D3 [Concomitant]
     Active Substance: CHOLECALCIFEROL
     Indication: SUPPLEMENTATION THERAPY

REACTIONS (14)
  - Emotional poverty [Recovering/Resolving]
  - Disruptive mood dysregulation disorder [Unknown]
  - Aggression [Unknown]
  - Pain [Unknown]
  - Immobile [Not Recovered/Not Resolved]
  - Off label use [Unknown]
  - Sedation [Recovering/Resolving]
  - Mobility decreased [Not Recovered/Not Resolved]
  - Aphasia [Not Recovered/Not Resolved]
  - Emotional disorder [Recovering/Resolving]
  - Sedation complication [Unknown]
  - Quality of life decreased [Unknown]
  - Lack of spontaneous speech [Not Recovered/Not Resolved]
  - Cognitive disorder [Unknown]

NARRATIVE: CASE EVENT DATE: 2017
